FAERS Safety Report 9417609 (Version 1)
Quarter: 2013Q3

REPORT INFORMATION
  Report Type: Spontaneous
  Country: US (occurrence: US)
  Receive Date: 20130724
  Receipt Date: 20130724
  Transmission Date: 20140515
  Serious: No
  Sender: FDA-Public Use
  Company Number: US-BRISTOL-MYERS SQUIBB COMPANY-18984245

PATIENT
  Age: 60 Year
  Sex: Male
  Weight: 126.98 kg

DRUGS (4)
  1. ELIQUIS [Suspect]
     Indication: ATRIAL FIBRILLATION
     Dates: start: 201305, end: 20130531
  2. ELIQUIS [Suspect]
     Indication: ATRIAL FLUTTER
     Dates: start: 201305, end: 20130531
  3. METOPROLOL [Concomitant]
     Indication: HYPERTENSION
  4. HYDROCHLOROTHIAZIDE [Concomitant]
     Indication: HYPERTENSION

REACTIONS (4)
  - Malaise [Recovered/Resolved]
  - Headache [Unknown]
  - Somnolence [Unknown]
  - Asthenia [Unknown]
